FAERS Safety Report 18187390 (Version 1)
Quarter: 2020Q3

REPORT INFORMATION
  Report Type: Spontaneous
  Country: RO (occurrence: RO)
  Receive Date: 20200824
  Receipt Date: 20200824
  Transmission Date: 20201103
  Serious: Yes (Other)
  Sender: FDA-Public Use
  Company Number: RO-AMNEAL PHARMACEUTICALS-2020-AMRX-02549

PATIENT

DRUGS (1)
  1. RYTARY [Suspect]
     Active Substance: CARBIDOPA\LEVODOPA
     Indication: PARKINSON^S DISEASE
     Dosage: UNK, GEL
     Route: 065

REACTIONS (2)
  - Pulmonary embolism [Unknown]
  - Acute psychosis [Unknown]
